FAERS Safety Report 21236350 (Version 2)
Quarter: 2022Q3

REPORT INFORMATION
  Report Type: Spontaneous
  Country: JP (occurrence: JP)
  Receive Date: 20220822
  Receipt Date: 20220907
  Transmission Date: 20221026
  Serious: Yes (Other)
  Sender: FDA-Public Use
  Company Number: JP-MSD-M2022-33992

PATIENT
  Age: 56 Year
  Sex: Male

DRUGS (12)
  1. LAGEVRIO [Suspect]
     Active Substance: MOLNUPIRAVIR
     Indication: COVID-19 treatment
     Dosage: 800 MILLIGRAM, QD
     Route: 048
     Dates: start: 20220814, end: 20220814
  2. LAGEVRIO [Suspect]
     Active Substance: MOLNUPIRAVIR
     Dosage: 800 MILLIGRAM, BID
     Route: 048
     Dates: start: 20220815, end: 20220815
  3. LAGEVRIO [Suspect]
     Active Substance: MOLNUPIRAVIR
     Dosage: 800 MILLIGRAM, QD
     Route: 048
     Dates: start: 20220816, end: 20220816
  4. CALONAL [Concomitant]
     Active Substance: ACETAMINOPHEN
     Dosage: UNK
     Route: 065
  5. TRANSAMIN [Concomitant]
     Active Substance: TRANEXAMIC ACID
     Dosage: UNK
     Route: 065
  6. LEVOFLOXACIN [Concomitant]
     Active Substance: LEVOFLOXACIN
     Dosage: UNK
     Route: 065
  7. XARELTO [Concomitant]
     Active Substance: RIVAROXABAN
     Dosage: UNK
     Route: 065
  8. RYBELSUS [Concomitant]
     Active Substance: SEMAGLUTIDE
     Dosage: UNK
     Route: 065
  9. PEMAFIBRATE [Concomitant]
     Active Substance: PEMAFIBRATE
     Dosage: UNK
     Route: 065
  10. CARVEDILOL [Concomitant]
     Active Substance: CARVEDILOL
     Dosage: UNK
     Route: 065
  11. TAMSULOSIN HYDROCHLORIDE [Concomitant]
     Active Substance: TAMSULOSIN HYDROCHLORIDE
     Dosage: UNK
     Route: 065
  12. ATORVASTATIN CALCIUM TRIHYDRATE [Concomitant]
     Active Substance: ATORVASTATIN CALCIUM TRIHYDRATE
     Dosage: UNK
     Route: 065

REACTIONS (1)
  - Urinary retention [Unknown]

NARRATIVE: CASE EVENT DATE: 20220814
